FAERS Safety Report 18555015 (Version 1)
Quarter: 2020Q4

REPORT INFORMATION
  Report Type: Spontaneous
  Country: US (occurrence: US)
  Receive Date: 20201127
  Receipt Date: 20201127
  Transmission Date: 20210114
  Serious: Yes (Hospitalization, Other)
  Sender: FDA-Public Use
  Company Number: US-BIOVITRUM-2020US6722

PATIENT
  Sex: Male
  Weight: 11 kg

DRUGS (3)
  1. ENFAMIL [Concomitant]
     Active Substance: AMINO ACIDS\CARBOHYDRATES\MINERALS\VITAMINS
     Dosage: NFANT 2-5.3G/100 POWD PACK
  2. MULTIVITAMINS [Concomitant]
     Active Substance: VITAMINS
  3. SYNAGIS [Suspect]
     Active Substance: PALIVIZUMAB
     Indication: PREMATURE BABY
     Route: 030

REACTIONS (4)
  - Cyanosis [Unknown]
  - Dyspnoea [Unknown]
  - Heart rate abnormal [Unknown]
  - Pneumonia [Unknown]
